FAERS Safety Report 6640642-6 (Version None)
Quarter: 2010Q1

REPORT INFORMATION
  Report Type: 
  Country: None (occurrence: None)
  Receive Date: 20100318
  Receipt Date: 20100305
  Transmission Date: 20100710
  Serious: Yes (Hospitalization)
  Sender: FDA-Public Use
  Company Number: US-ELI_LILLY_AND_COMPANY-US200812001782

PATIENT
  Sex: Male
  Weight: 102.95 kg

DRUGS (14)
  1. BYETTA [Suspect]
     Indication: DIABETES MELLITUS
     Dosage: 5 UG, 2/D
     Route: 058
     Dates: start: 20070701, end: 20080401
  2. CYMBALTA [Concomitant]
     Indication: DEPRESSION
     Dosage: 60 MG, DAILY (1/D)
     Route: 048
     Dates: start: 20070101
  3. VYTORIN [Concomitant]
     Indication: BLOOD CHOLESTEROL
     Dosage: UNK, DAILY (1/D)
     Route: 048
     Dates: start: 20070101
  4. PLAVIX [Concomitant]
     Indication: STENT PLACEMENT
     Dosage: 75 MG, DAILY (1/D)
     Route: 048
  5. PROTONIX [Concomitant]
     Indication: DYSPEPSIA
     Dosage: 40 MG, DAILY (1/D)
     Route: 048
     Dates: start: 20070101
  6. TRICOR [Concomitant]
     Indication: BLOOD CHOLESTEROL INCREASED
     Dosage: 145 MG, DAILY (1/D)
     Route: 048
  7. TOPROL-XL [Concomitant]
     Indication: BLOOD PRESSURE
     Dosage: 50 MG, DAILY (1/D)
     Route: 048
  8. ASPIRIN [Concomitant]
     Dosage: 81 MG, DAILY (1/D)
     Route: 048
  9. FLEXERIL [Concomitant]
     Indication: PAIN
     Dosage: 10 MG, AS NEEDED
     Route: 048
  10. CARAFATE [Concomitant]
     Indication: ABDOMINAL DISCOMFORT
     Dosage: 30 ML, AS NEEDED
     Route: 048
  11. M.V.I. [Concomitant]
     Indication: VITAMIN SUPPLEMENTATION
     Dosage: UNK, DAILY (1/D)
     Route: 048
  12. TESTIM [Concomitant]
     Dosage: UNK, DAILY (1/D)
     Route: 062
  13. COREG [Concomitant]
     Dosage: 25 MG, 2/D
     Route: 048
  14. BENICAR HCT [Concomitant]
     Route: 048

REACTIONS (8)
  - DEHYDRATION [None]
  - GASTROENTERITIS [None]
  - HYPERAMYLASAEMIA [None]
  - HYPERGLYCAEMIA [None]
  - HYPERLIPASAEMIA [None]
  - PANCREATITIS [None]
  - RASH PRURITIC [None]
  - VIRAL INFECTION [None]
